FAERS Safety Report 13840822 (Version 1)
Quarter: 2017Q3

REPORT INFORMATION
  Report Type: Spontaneous
  Country: US (occurrence: US)
  Receive Date: 20170807
  Receipt Date: 20170807
  Transmission Date: 20171127
  Serious: No
  Sender: FDA-Public Use
  Company Number: US-009507513-1708USA001656

PATIENT
  Age: 61 Year
  Sex: Female

DRUGS (7)
  1. REBETOL [Concomitant]
     Active Substance: RIBAVIRIN
     Dosage: UNK
     Route: 048
  2. INTRON A [Suspect]
     Active Substance: INTERFERON ALFA-2B
     Dosage: 3 MILLION IU, THREE TIMES PER WEEK
     Route: 058
     Dates: start: 20170714
  3. OMEGA-3 MARINE TRIGLYCERIDES [Concomitant]
     Active Substance: FISH OIL
  4. VITAMINS (UNSPECIFIED) [Concomitant]
     Active Substance: VITAMINS
  5. PRINIVIL [Concomitant]
     Active Substance: LISINOPRIL
     Dosage: UNK
     Route: 048
  6. KLONOPIN [Concomitant]
     Active Substance: CLONAZEPAM
  7. GABAPENTIN. [Concomitant]
     Active Substance: GABAPENTIN

REACTIONS (1)
  - Influenza like illness [Recovering/Resolving]

NARRATIVE: CASE EVENT DATE: 20170729
